FAERS Safety Report 15010529 (Version 3)
Quarter: 2020Q2

REPORT INFORMATION
  Report Type: Spontaneous
  Country: CA (occurrence: CA)
  Receive Date: 20180614
  Receipt Date: 20200520
  Transmission Date: 20200713
  Serious: Yes (Other)
  Sender: FDA-Public Use
  Company Number: CA-ROCHE-2137662

PATIENT
  Sex: Female
  Weight: 70 kg

DRUGS (10)
  1. METHOTREXATE. [Suspect]
     Active Substance: METHOTREXATE
     Indication: RHEUMATOID ARTHRITIS
     Route: 065
  2. RITUXIMAB. [Suspect]
     Active Substance: RITUXIMAB
     Indication: RHEUMATOID ARTHRITIS
     Route: 042
  3. RITUXAN [Suspect]
     Active Substance: RITUXIMAB
     Indication: RHEUMATOID ARTHRITIS
     Route: 042
  4. ENBREL [Suspect]
     Active Substance: ETANERCEPT
     Indication: RHEUMATOID ARTHRITIS
     Dosage: THERAPY DURATION:148 DAYS.
     Route: 065
  5. ORENCIA [Suspect]
     Active Substance: ABATACEPT
     Indication: RHEUMATOID ARTHRITIS
     Route: 065
  6. SIMPONI [Suspect]
     Active Substance: GOLIMUMAB
     Indication: RHEUMATOID ARTHRITIS
     Route: 058
  7. ARAVA [Concomitant]
     Active Substance: LEFLUNOMIDE
     Indication: PRODUCT USED FOR UNKNOWN INDICATION
     Route: 065
  8. HUMIRA [Suspect]
     Active Substance: ADALIMUMAB
     Indication: RHEUMATOID ARTHRITIS
     Route: 058
  9. SIMPONI [Suspect]
     Active Substance: GOLIMUMAB
     Indication: PRODUCT USED FOR UNKNOWN INDICATION
     Route: 065
  10. PREDNISONE. [Concomitant]
     Active Substance: PREDNISONE
     Indication: PRODUCT USED FOR UNKNOWN INDICATION
     Route: 065

REACTIONS (16)
  - Mobility decreased [Unknown]
  - Weight decreased [Unknown]
  - Off label use [Unknown]
  - Peripheral swelling [Unknown]
  - Stress [Unknown]
  - Gait disturbance [Unknown]
  - Walking aid user [Unknown]
  - Drug ineffective [Unknown]
  - Adjustment disorder with depressed mood [Unknown]
  - Intentional product use issue [Unknown]
  - Muscular weakness [Unknown]
  - Contraindicated product administered [Unknown]
  - Diabetes mellitus [Unknown]
  - Grip strength decreased [Unknown]
  - Pain in extremity [Unknown]
  - Fine motor skill dysfunction [Unknown]
